FAERS Safety Report 5646083-2 (Version None)
Quarter: 2008Q1

REPORT INFORMATION
  Report Type: 
  Country: None (occurrence: None)
  Receive Date: 20080227
  Receipt Date: 20080212
  Transmission Date: 20080703
  Serious: Yes (Hospitalization)
  Sender: FDA-Public Use
  Company Number: B0509229A

PATIENT
  Age: 80 Year
  Sex: Male

DRUGS (10)
  1. AUGMENTIN [Suspect]
     Indication: OSTEITIS
     Dates: start: 20070628, end: 20070714
  2. ALLPURINOL (FORMULATION UNKNOWN)(ALLOPURINOL) [Suspect]
     Indication: GOUT
     Dates: end: 20070710
  3. OFLOXACIN (FORMULATION UNKNOWN) (OFLOXACIN) [Concomitant]
     Indication: OSTEITIS
     Dates: start: 20070628, end: 20070714
  4. ENOXAPARIN INJECTION (ENOXAPARIN) [Suspect]
     Indication: PROPHYLAXIS
     Dates: start: 20070628, end: 20070713
  5. COLCHIMAX (FORMULATION UNKNOWN) (COLCHIMAX) [Concomitant]
     Indication: GOUT
     Dates: start: 20070706, end: 20070710
  6. FOSINOPRIL (FORMULATION UNKNOWN) (FOSINOPRIL) [Concomitant]
     Indication: HYPERTENSION
     Dates: end: 20070713
  7. REPAGLINIDE [Concomitant]
  8. DIGOXIN [Concomitant]
  9. FUROSEMIDE [Concomitant]
  10. FLUINDIONE [Concomitant]

REACTIONS (22)
  - ABSCESS LIMB [None]
  - CONDITION AGGRAVATED [None]
  - DYSPNOEA [None]
  - GOUT [None]
  - HAEMODIALYSIS [None]
  - HYPERTENSION [None]
  - IRON DEFICIENCY [None]
  - NORMOCHROMIC NORMOCYTIC ANAEMIA [None]
  - OSTEITIS [None]
  - PERFORATED ULCER [None]
  - PETECHIAE [None]
  - POST STREPTOCOCCAL GLOMERULONEPHRITIS [None]
  - PROTEINURIA [None]
  - RENAL FAILURE ACUTE [None]
  - SKIN ULCER [None]
  - SLEEP APNOEA SYNDROME [None]
  - STAPHYLOCOCCAL ABSCESS [None]
  - STAPHYLOCOCCAL SEPSIS [None]
  - STREPTOCOCCAL SEPSIS [None]
  - THROMBOCYTOPENIA [None]
  - WEIGHT DECREASED [None]
  - WHITE BLOOD CELL COUNT DECREASED [None]
